FAERS Safety Report 4437535-1 (Version None)
Quarter: 2004Q3

REPORT INFORMATION
  Report Type: 
  Country: None (occurrence: None)
  Receive Date: 20040830
  Receipt Date: 20040830
  Transmission Date: 20050211
  Serious: Yes (Other)
  Sender: FDA-Public Use
  Company Number: None

PATIENT
  Sex: Female
  Weight: 110.6777 kg

DRUGS (1)
  1. PAXIL [Suspect]

REACTIONS (3)
  - ABNORMAL BEHAVIOUR [None]
  - MANIA [None]
  - OBSESSIVE-COMPULSIVE DISORDER [None]
